FAERS Safety Report 9681446 (Version 1)
Quarter: 2013Q4

REPORT INFORMATION
  Report Type: Spontaneous
  Country: CH (occurrence: None)
  Receive Date: 20131107
  Receipt Date: 20131107
  Transmission Date: 20140711
  Serious: Yes (Hospitalization)
  Sender: FDA-Public Use
  Company Number: SYM-2013-12341

PATIENT
  Age: 58 Year
  Sex: 0

DRUGS (4)
  1. FLUOROURACIL (FLUOROURACIL) (INFUSION) (FLUOROURACIL) [Suspect]
     Indication: RECTOSIGMOID CANCER METASTATIC
     Dates: start: 201305, end: 201307
  2. OXALIPLATIN (OXALIPLATIN) (INFUSION) (OXALIPLATIN) [Suspect]
     Indication: RECTOSIGMOID CANCER METASTATIC
     Dates: start: 201305, end: 201307
  3. CETUXIMAB (CETUXIMAB) (INFUSION) [Suspect]
     Indication: RECTOSIGMOID CANCER METASTATIC
     Dates: start: 201305, end: 201307
  4. LEUCOVORIN (FOLINIC ACID) (INFUSION) (FOLINIC ACID) [Suspect]
     Indication: RECTOSIGMOID CANCER METASTATIC
     Dates: start: 201305, end: 201307

REACTIONS (3)
  - Mineral metabolism disorder [None]
  - Aphthous stomatitis [None]
  - Diarrhoea [None]
